FAERS Safety Report 4270542-0 (Version None)
Quarter: 2004Q1

REPORT INFORMATION
  Report Type: 
  Country: None (occurrence: None)
  Receive Date: 20040113
  Receipt Date: 20040113
  Transmission Date: 20041129
  Serious: Yes (Other)
  Sender: FDA-Public Use
  Company Number: None

PATIENT
  Sex: Male
  Weight: 109 kg

DRUGS (2)
  1. PEGYSUS 180 MCG ROCHE [Suspect]
     Indication: HEPATITIS C
     Dosage: 180 MCG WEEKLY  SUBCUTANEOUS
     Route: 058
     Dates: start: 20030212, end: 20030507
  2. RIBAVIRIN [Suspect]
     Indication: HEPATITIS C
     Dosage: 600 MG TWICE DAILY ORAL
     Route: 048
     Dates: start: 20030212, end: 20030507

REACTIONS (2)
  - DEPRESSION [None]
  - SUICIDAL IDEATION [None]
